FAERS Safety Report 17786525 (Version 2)
Quarter: 2020Q4

REPORT INFORMATION
  Report Type: Other
  Country: IT (occurrence: IT)
  Receive Date: 20200514
  Receipt Date: 20201225
  Transmission Date: 20210113
  Serious: Yes (Other)
  Sender: FDA-Public Use
  Company Number: IT-ROCHE-2571091

PATIENT
  Age: 55 Year
  Sex: Female

DRUGS (10)
  1. PERTUZUMAB. [Suspect]
     Active Substance: PERTUZUMAB
     Indication: BREAST CANCER
     Dosage: MOST RECENT DOSE PRIOR TO THE EVENT: 26/FEB/2018
     Route: 042
     Dates: start: 20180205
  2. TAMOXIFEN [Suspect]
     Active Substance: TAMOXIFEN
     Indication: BREAST CANCER
     Dosage: MOST RECENT DOSE ON 22/JAN/2018.
     Route: 048
     Dates: start: 20121210
  3. XARELTO [Concomitant]
     Active Substance: RIVAROXABAN
     Dosage: ONGOING = CHECKED
     Dates: start: 20190111
  4. LANSOPRAZOLO [Concomitant]
     Active Substance: LANSOPRAZOLE
     Dosage: ONGOING = CHECKED
     Dates: start: 20180326
  5. LETROZOLE. [Suspect]
     Active Substance: LETROZOLE
     Indication: BREAST CANCER
     Route: 048
     Dates: start: 20180618
  6. COLECALCIFEROL [Concomitant]
     Active Substance: CHOLECALCIFEROL
     Dosage: ONGOING = CHECKED
     Dates: start: 20180730
  7. TRASTUZUMAB. [Suspect]
     Active Substance: TRASTUZUMAB
     Indication: BREAST CANCER
     Dosage: MOST RECENT DOSE PRIOR TO THE EVENT: 26/FEB/2018
     Route: 041
     Dates: start: 20180205
  8. PACLITAXEL. [Suspect]
     Active Substance: PACLITAXEL
     Indication: BREAST CANCER
     Dosage: MOST RECENT DOSE ON 30/APR/2018.
     Route: 042
     Dates: start: 20180205
  9. CARDICOR [Concomitant]
     Active Substance: BISOPROLOL
     Dosage: ONGOING = CHECKED
     Dates: start: 20190111
  10. CHLORPHENIRAMINE MALEATE. [Concomitant]
     Active Substance: CHLORPHENIRAMINE MALEATE
     Dosage: ONGOING = NOT CHECKED
     Dates: start: 20180525, end: 20190508

REACTIONS (1)
  - Atrial fibrillation [Recovered/Resolved]

NARRATIVE: CASE EVENT DATE: 20190508
